FAERS Safety Report 12708016 (Version 8)
Quarter: 2024Q3

REPORT INFORMATION
  Report Type: Spontaneous
  Country: CA (occurrence: CA)
  Receive Date: 20160901
  Receipt Date: 20240827
  Transmission Date: 20241017
  Serious: Yes (Other)
  Sender: PFIZER
  Company Number: CA-MLMSERVICE-20160223-0182018-2

PATIENT
  Age: 58 Year
  Sex: Female

DRUGS (14)
  1. MIDAZOLAM [Suspect]
     Active Substance: MIDAZOLAM
     Indication: Therapeutic procedure
     Dosage: UNK
  2. MIDAZOLAM [Suspect]
     Active Substance: MIDAZOLAM
     Indication: Status epilepticus
  3. PROPOFOL [Suspect]
     Active Substance: PROPOFOL
     Indication: Therapeutic procedure
     Dosage: UNK
  4. PROPOFOL [Suspect]
     Active Substance: PROPOFOL
     Indication: Status epilepticus
  5. KETAMINE HYDROCHLORIDE [Suspect]
     Active Substance: KETAMINE HYDROCHLORIDE
     Indication: Therapeutic procedure
     Dosage: UNK
  6. KETAMINE HYDROCHLORIDE [Suspect]
     Active Substance: KETAMINE HYDROCHLORIDE
     Indication: Status epilepticus
  7. ISOFLURANE [Suspect]
     Active Substance: ISOFLURANE
     Indication: Therapeutic procedure
     Dosage: UNK
  8. ISOFLURANE [Suspect]
     Active Substance: ISOFLURANE
     Indication: Status epilepticus
  9. LEVETIRACETAM [Concomitant]
     Active Substance: LEVETIRACETAM
     Indication: Therapeutic procedure
     Dosage: UNK
  10. PHENOBARBITAL [Concomitant]
     Active Substance: PHENOBARBITAL
     Indication: Therapeutic procedure
     Dosage: 150 MG, 2X/DAY (NG)
     Route: 049
  11. PHENYTOIN [Concomitant]
     Active Substance: PHENYTOIN
     Indication: Seizure
     Dosage: UNK
  12. PHENYTOIN [Concomitant]
     Active Substance: PHENYTOIN
     Indication: Therapeutic procedure
  13. VALPROIC ACID [Concomitant]
     Active Substance: VALPROIC ACID
     Indication: Therapeutic procedure
     Dosage: UNK
  14. PIPERACILLIN AND TAZOBACTAM [Concomitant]
     Active Substance: PIPERACILLIN SODIUM\TAZOBACTAM SODIUM
     Indication: Appendicitis
     Dosage: UNK

REACTIONS (1)
  - Intestinal ischaemia [Unknown]
